FAERS Safety Report 11121043 (Version 1)
Quarter: 2015Q2

REPORT INFORMATION
  Report Type: Spontaneous
  Country: US (occurrence: None)
  Receive Date: 20150518
  Receipt Date: 20150518
  Transmission Date: 20150821
  Serious: Yes (Hospitalization)
  Sender: FDA-Public Use
  Company Number: None

PATIENT
  Age: 63 Year
  Sex: Female
  Weight: 69.4 kg

DRUGS (1)
  1. GLASSIA [Suspect]
     Active Substance: .ALPHA.1-PROTEINASE INHIBITOR HUMAN
     Indication: ALPHA-1 ANTI-TRYPSIN DEFICIENCY
     Dosage: 4000MG (200ML)
     Route: 042
     Dates: start: 20150422, end: 20150512

REACTIONS (3)
  - Headache [None]
  - Chest discomfort [None]
  - Blood pressure increased [None]

NARRATIVE: CASE EVENT DATE: 20150512
